FAERS Safety Report 7677745-3 (Version None)
Quarter: 2011Q3

REPORT INFORMATION
  Report Type: 
  Country: None (occurrence: None)
  Receive Date: 20110811
  Receipt Date: 20110808
  Transmission Date: 20111222
  Serious: Yes (Other)
  Sender: FDA-Public Use
  Company Number: JP-PFIZER INC-2011181444

PATIENT
  Age: 71 Year
  Sex: Female
  Weight: 50 kg

DRUGS (2)
  1. ZITHROMAX [Suspect]
     Indication: PHARYNGITIS
     Dosage: 500 MG, 1X/DAY
     Route: 048
     Dates: start: 20110729, end: 20110729
  2. MUCODYNE [Suspect]
     Indication: PHARYNGITIS
     Dosage: 1500 MG, 3X/DAY
     Route: 048
     Dates: start: 20110729, end: 20110729

REACTIONS (1)
  - TOXIC SKIN ERUPTION [None]
